FAERS Safety Report 7107816-1 (Version None)
Quarter: 2010Q4

REPORT INFORMATION
  Report Type: 
  Country: None (occurrence: None)
  Receive Date: 20101117
  Receipt Date: 20101109
  Transmission Date: 20110411
  Serious: Yes (Death, Other)
  Sender: FDA-Public Use
  Company Number: US-AMGEN LTD.-QUU445267

PATIENT

DRUGS (2)
  1. NPLATE [Suspect]
     Indication: APLASTIC ANAEMIA
     Dosage: UNK UNK, UNK
     Dates: start: 20100713
  2. NPLATE [Suspect]
     Indication: THROMBOCYTOPENIA
     Dates: start: 19740206

REACTIONS (3)
  - CEREBRAL HAEMORRHAGE [None]
  - DRUG INEFFECTIVE [None]
  - THROMBOCYTOPENIA [None]
